FAERS Safety Report 7080912-3 (Version None)
Quarter: 2010Q4

REPORT INFORMATION
  Report Type: 
  Country: None (occurrence: None)
  Receive Date: 20101025
  Receipt Date: 20101013
  Transmission Date: 20110411
  Serious: Yes (Hospitalization)
  Sender: FDA-Public Use
  Company Number: 2010MA003575

PATIENT
  Age: 29 Year
  Sex: Male

DRUGS (2)
  1. DONEPEZIL HYDROCHLORIDE [Suspect]
     Dosage: 23 MG;
     Dates: start: 20100917
  2. ONDANSETRON HYDROCHLORIDE 8MG TABLETS (NATCO PHARMA LIMITED) [Concomitant]

REACTIONS (5)
  - INFECTION [None]
  - OEDEMA PERIPHERAL [None]
  - TIBIA FRACTURE [None]
  - URINARY RETENTION [None]
  - VICTIM OF CRIME [None]
